FAERS Safety Report 12760439 (Version 1)
Quarter: 2016Q3

REPORT INFORMATION
  Report Type: Spontaneous
  Country: KR (occurrence: KR)
  Receive Date: 20160919
  Receipt Date: 20160919
  Transmission Date: 20161109
  Serious: Yes (Death, Other)
  Sender: FDA-Public Use
  Company Number: KR-TEVA-693012ISR

PATIENT
  Age: 51 Year
  Sex: Male

DRUGS (2)
  1. IDARUBICIN [Suspect]
     Active Substance: IDARUBICIN
     Indication: ACUTE MYELOID LEUKAEMIA
     Dosage: DAYS 1 TO 3
     Route: 065
  2. CYTARABINE. [Suspect]
     Active Substance: CYTARABINE
     Indication: ACUTE MYELOID LEUKAEMIA
     Dosage: DAYS 1 TO 7
     Route: 065

REACTIONS (5)
  - Oesophagobronchial fistula [Fatal]
  - Pneumonia necrotising [Fatal]
  - Mucormycosis [Fatal]
  - Haemoptysis [Fatal]
  - Neutropenia [Recovered/Resolved]
